FAERS Safety Report 5488339-2 (Version None)
Quarter: 2007Q4

REPORT INFORMATION
  Report Type: 
  Country: None (occurrence: None)
  Receive Date: 20071017
  Receipt Date: 20071016
  Transmission Date: 20080405
  Serious: Yes (Death, Hospitalization)
  Sender: FDA-Public Use
  Company Number: A0688018A

PATIENT
  Age: 88 Year
  Sex: Male

DRUGS (3)
  1. AVANDIA [Suspect]
     Route: 048
     Dates: start: 19990101, end: 20060101
  2. THYROID TAB [Concomitant]
  3. METFORMIN [Concomitant]

REACTIONS (4)
  - COMA [None]
  - KIDNEY INFECTION [None]
  - RENAL FAILURE [None]
  - STAPHYLOCOCCAL INFECTION [None]
